FAERS Safety Report 8760146 (Version 1)
Quarter: 2012Q4

REPORT INFORMATION
  Report Type: 
  Country: FR (occurrence: FR)
  Receive Date: 20120829
  Receipt Date: 20120829
  Transmission Date: 20130627
  Serious: Yes (Death, Hospitalization)
  Sender: FDA-Public Use
  Company Number: FR-ROCHE-1101643

PATIENT
  Age: 54 Year
  Sex: Female

DRUGS (4)
  1. ROCEPHINE [Suspect]
     Indication: PRODUCT USED FOR UNKNOWN INDICATION
     Route: 030
     Dates: start: 20120217, end: 20120217
  2. SOLUPRED (FRANCE) [Concomitant]
     Route: 048
  3. ATROVENT [Concomitant]
     Route: 055
  4. VENTOLINE [Concomitant]
     Route: 055

REACTIONS (4)
  - Anaphylactic shock [Fatal]
  - Transaminases increased [Fatal]
  - Prothrombin time shortened [Fatal]
  - Factor V deficiency [Fatal]
